FAERS Safety Report 17942869 (Version 1)
Quarter: 2020Q2

REPORT INFORMATION
  Report Type: Spontaneous
  Country: GB (occurrence: GB)
  Receive Date: 20200625
  Receipt Date: 20200625
  Transmission Date: 20200714
  Serious: Yes (Other)
  Sender: FDA-Public Use
  Company Number: NVSC2020GB176828

PATIENT
  Age: 30 Year
  Sex: Male

DRUGS (2)
  1. SECUKINUMAB. [Suspect]
     Active Substance: SECUKINUMAB
     Indication: ANKYLOSING SPONDYLITIS
     Dosage: 150 MG, QD
     Route: 058
     Dates: start: 20200418, end: 20200418
  2. SECUKINUMAB. [Suspect]
     Active Substance: SECUKINUMAB
     Dosage: 150 MG, QD
     Route: 058
     Dates: start: 20200425, end: 20200425

REACTIONS (5)
  - Epistaxis [Recovered/Resolved]
  - Hypersensitivity [Unknown]
  - Vomiting [Recovered/Resolved]
  - Dizziness [Unknown]
  - Dyspnoea [Recovered/Resolved]

NARRATIVE: CASE EVENT DATE: 202004
